FAERS Safety Report 5812481-7 (Version None)
Quarter: 2008Q3

REPORT INFORMATION
  Report Type: 
  Country: None (occurrence: None)
  Receive Date: 20080715
  Receipt Date: 20080715
  Transmission Date: 20090109
  Serious: Yes (Death)
  Sender: FDA-Public Use
  Company Number: None

PATIENT
  Age: 63 Year
  Sex: Female
  Weight: 62.5964 kg

DRUGS (2)
  1. CARBOPLATIN [Suspect]
     Indication: OVARIAN CANCER
     Dosage: 642 MG Q 21 DAYS IV DRIP
     Route: 041
     Dates: start: 20080711, end: 20080711
  2. CARBOPLATIN [Suspect]

REACTIONS (3)
  - CARDIAC ARREST [None]
  - NAUSEA [None]
  - VOMITING [None]
